FAERS Safety Report 7288581-4 (Version None)
Quarter: 2011Q1

REPORT INFORMATION
  Report Type: 
  Country: None (occurrence: None)
  Receive Date: 20110211
  Receipt Date: 20110201
  Transmission Date: 20110831
  Serious: Yes (Other)
  Sender: FDA-Public Use
  Company Number: FR-ELI_LILLY_AND_COMPANY-FR201102000178

PATIENT
  Age: 45 Year
  Sex: Male

DRUGS (3)
  1. ZYPADHERA [Suspect]
     Indication: SCHIZOPHRENIA
     Dosage: 300 MG, EVERY 2 WEEKS
     Route: 030
  2. ZYPREXA [Concomitant]
     Indication: SCHIZOPHRENIA
     Dosage: 20 MG, DAILY (1/D)
     Route: 048
  3. VALIUM [Concomitant]
     Indication: SCHIZOPHRENIA
     Dosage: 2.5 MG, DAILY (1/D)
     Route: 048

REACTIONS (8)
  - AGGRESSION [None]
  - LOSS OF CONSCIOUSNESS [None]
  - AGITATION [None]
  - DISORIENTATION [None]
  - CONFUSIONAL STATE [None]
  - NEGATIVISM [None]
  - CYANOSIS [None]
  - OXYGEN SATURATION DECREASED [None]
